FAERS Safety Report 4937618-3 (Version None)
Quarter: 2006Q1

REPORT INFORMATION
  Report Type: 
  Country: None (occurrence: None)
  Receive Date: 20060309
  Receipt Date: 20050930
  Transmission Date: 20060701
  Serious: Yes (Death, Other)
  Sender: FDA-Public Use
  Company Number: US-MERCK-0510USA02098

PATIENT
  Age: 56 Year
  Sex: Male
  Weight: 68 kg

DRUGS (2)
  1. VIOXX [Suspect]
     Indication: OSTEOARTHRITIS
     Route: 048
     Dates: start: 20001010, end: 20040216
  2. VIOXX [Suspect]
     Route: 048
     Dates: start: 20040216, end: 20040419

REACTIONS (17)
  - AORTIC VALVE INCOMPETENCE [None]
  - BRONCHOSPASM [None]
  - CARDIOMYOPATHY [None]
  - CEREBRAL ATROPHY [None]
  - CHRONIC OBSTRUCTIVE PULMONARY DISEASE [None]
  - DEATH [None]
  - DIABETES MELLITUS INADEQUATE CONTROL [None]
  - DIABETIC NEUROPATHY [None]
  - DIABETIC ULCER [None]
  - DIASTOLIC DYSFUNCTION [None]
  - GASTROENTERITIS [None]
  - HYPERTENSION [None]
  - HYPERTENSIVE HEART DISEASE [None]
  - MYOCARDIAL INFARCTION [None]
  - OSTEOARTHRITIS [None]
  - SINUSITIS [None]
  - VENTRICULAR HYPERTROPHY [None]
